FAERS Safety Report 22069730 (Version 2)
Quarter: 2024Q1

REPORT INFORMATION
  Report Type: Spontaneous
  Country: US (occurrence: US)
  Receive Date: 20230307
  Receipt Date: 20240226
  Transmission Date: 20240409
  Serious: No
  Sender: FDA-Public Use
  Company Number: US-AMNEAL PHARMACEUTICALS-2022-AMRX-01091

PATIENT
  Sex: Male

DRUGS (4)
  1. RYTARY [Suspect]
     Active Substance: CARBIDOPA\LEVODOPA
     Indication: Product used for unknown indication
     Dosage: 61.25-245MG 2 CAPSULES, 5 /DAY
     Route: 048
  2. RYTARY [Suspect]
     Active Substance: CARBIDOPA\LEVODOPA
     Dosage: 61.25-245MG 3 CAPSULES, 5 /DAY
     Route: 048
     Dates: start: 20220622
  3. RYTARY [Suspect]
     Active Substance: CARBIDOPA\LEVODOPA
     Dosage: 2 CAPSULES BY MOUTH AT 6AM, 2PM, 10PM AND TAKE 1 CAPSULE BY MOUTH AT 10AM AND 6PM WITH 1 CAPSULE OF
     Route: 048
  4. RYTARY [Suspect]
     Active Substance: CARBIDOPA\LEVODOPA
     Dosage: 23.75-95MG: 1 CAPSULE FIVE TIMES DAILY WITH 1 CAPSULE OF RYTARY 245MG AND 61.25-245MG: 1 CAPSULE FIV
     Route: 048
     Dates: start: 20231205

REACTIONS (1)
  - Muscle spasms [Unknown]
